FAERS Safety Report 9511128 (Version 1)
Quarter: 2013Q3

REPORT INFORMATION
  Report Type: Spontaneous
  Country: US (occurrence: None)
  Receive Date: 20130909
  Receipt Date: 20130909
  Transmission Date: 20140515
  Serious: Yes (Life-Threatening, Hospitalization)
  Sender: FDA-Public Use
  Company Number: None

PATIENT
  Age: 59 Year
  Sex: Male
  Weight: 103 kg

DRUGS (9)
  1. RIVAROXABAN [Suspect]
     Indication: ATRIAL FIBRILLATION
     Dosage: 20 MG QD ORAL
     Route: 048
     Dates: start: 20121220, end: 20130623
  2. ATENOLOL (TENORMIN) [Concomitant]
  3. OMEPRAZOLE (PRILOSEC) [Concomitant]
  4. TERBINAFINE (LAMISIL) [Concomitant]
  5. ENALAPRIL (VASOTEC) [Concomitant]
  6. EPINEPHRINE (EPIPEN) [Concomitant]
  7. VARENICLINE (CHANTIX) [Concomitant]
  8. RIVAROXABAN (XARELTO) [Concomitant]
  9. CHOLECALCIFEROL (VITAMIN D) [Concomitant]

REACTIONS (5)
  - Mesenteric artery thrombosis [None]
  - Abdominal pain [None]
  - Nausea [None]
  - Vomiting [None]
  - Diarrhoea haemorrhagic [None]
